FAERS Safety Report 8056639-8 (Version None)
Quarter: 2012Q1

REPORT INFORMATION
  Report Type: 
  Country: None (occurrence: None)
  Receive Date: 20120119
  Receipt Date: 20120110
  Transmission Date: 20120608
  Serious: Yes (Other)
  Sender: FDA-Public Use
  Company Number: CHPA2012US000913

PATIENT
  Age: 60 Year
  Sex: Male

DRUGS (1)
  1. EXCEDRIN EXTRA STRENGTH CAPLETS [Suspect]
     Indication: RHEUMATOID ARTHRITIS
     Dosage: 2 TO 4 DF,  A DAY
     Route: 048

REACTIONS (6)
  - FATIGUE [None]
  - BLOOD DISORDER [None]
  - DEPRESSED MOOD [None]
  - IRRITABILITY [None]
  - COAGULATION FACTOR VII LEVEL ABNORMAL [None]
  - INCORRECT DRUG ADMINISTRATION DURATION [None]
